FAERS Safety Report 11048560 (Version 2)
Quarter: 2015Q3

REPORT INFORMATION
  Report Type: Spontaneous
  Country: US (occurrence: US)
  Receive Date: 20150420
  Receipt Date: 20150725
  Transmission Date: 20151125
  Serious: No
  Sender: FDA-Public Use
  Company Number: US-TEVA-555223USA

PATIENT
  Age: 51 Year
  Sex: Female
  Weight: 61.29 kg

DRUGS (6)
  1. ACTIQ [Suspect]
     Active Substance: FENTANYL CITRATE
     Indication: MUSCULOSKELETAL CHEST PAIN
  2. TYLENOL [Concomitant]
     Active Substance: ACETAMINOPHEN
     Indication: PAIN
  3. ACTIQ [Suspect]
     Active Substance: FENTANYL CITRATE
     Indication: CHEST PAIN
  4. ACTIQ [Suspect]
     Active Substance: FENTANYL CITRATE
     Indication: MUSCULOSKELETAL PAIN
     Route: 065
  5. CHLORHEXIDINE [Concomitant]
     Active Substance: CHLORHEXIDINE
     Indication: DENTAL CARIES
  6. LEVAQUIN [Concomitant]
     Active Substance: LEVOFLOXACIN
     Indication: PROPHYLAXIS

REACTIONS (4)
  - Gingival pain [Recovered/Resolved]
  - Gingival erosion [Recovered/Resolved]
  - Product use issue [Unknown]
  - Dental implantation [Unknown]

NARRATIVE: CASE EVENT DATE: 20141212
